FAERS Safety Report 9853296 (Version 2)
Quarter: 2014Q1

REPORT INFORMATION
  Report Type: Report from Study
  Country: US (occurrence: US)
  Receive Date: 20140129
  Receipt Date: 20140214
  Transmission Date: 20141002
  Serious: Yes (Death)
  Sender: FDA-Public Use
  Company Number: US-ACTELION-A-US2014-94014

PATIENT
  Age: 54 Year
  Sex: Female

DRUGS (3)
  1. TRACLEER [Suspect]
     Indication: PULMONARY ARTERIAL HYPERTENSION
     Dosage: UNK
     Route: 048
     Dates: end: 20131107
  2. TRACLEER [Suspect]
     Dosage: UNK
     Route: 048
     Dates: start: 20100414, end: 20100819
  3. SILDENAFIL [Concomitant]

REACTIONS (1)
  - Scleroderma [Fatal]
